FAERS Safety Report 16978103 (Version 1)
Quarter: 2019Q4

REPORT INFORMATION
  Report Type: Spontaneous
  Country: US (occurrence: US)
  Receive Date: 20190914
  Receipt Date: 20190914
  Transmission Date: 20200122
  Serious: Yes (Hospitalization)
  Sender: FDA-Public Use
  Company Number: None

PATIENT
  Age: 60 Year
  Sex: Male
  Weight: 91.17 kg

DRUGS (1)
  1. OLANZAPINE. [Suspect]
     Active Substance: OLANZAPINE
     Dates: end: 20190819

REACTIONS (6)
  - Deep vein thrombosis [None]
  - Troponin I increased [None]
  - Dyspnoea [None]
  - Pain in extremity [None]
  - Peripheral swelling [None]
  - Pulmonary embolism [None]

NARRATIVE: CASE EVENT DATE: 20190903
